FAERS Safety Report 4433050-X (Version None)
Quarter: 2004Q3

REPORT INFORMATION
  Report Type: 
  Country: None (occurrence: None)
  Receive Date: 20040721
  Receipt Date: 20030701
  Transmission Date: 20050211
  Serious: Yes (Hospitalization)
  Sender: FDA-Public Use
  Company Number: WAES0307USA00159

PATIENT

DRUGS (5)
  1. VIOXX [Suspect]
     Dosage: 25 MG/ DAILY/ PO
     Route: 048
  2. PLAVIX [Concomitant]
  3. ROBAXIN [Concomitant]
  4. TYLENOL [Concomitant]
  5. TRAMADOL HYDROCHLORIDE [Concomitant]

REACTIONS (2)
  - GASTRIC ULCER [None]
  - GASTROINTESTINAL HAEMORRHAGE [None]
